FAERS Safety Report 12694988 (Version 1)
Quarter: 2016Q3

REPORT INFORMATION
  Report Type: Report from Study
  Country: US (occurrence: US)
  Receive Date: 20160829
  Receipt Date: 20160829
  Transmission Date: 20161109
  Serious: Yes (Hospitalization, Other)
  Sender: FDA-Public Use
  Company Number: US-BAYER-2016-104009

PATIENT
  Age: 68 Year
  Sex: Male

DRUGS (10)
  1. MELOXICAM. [Concomitant]
     Active Substance: MELOXICAM
  2. ZOFRAN [Concomitant]
     Active Substance: ONDANSETRON HYDROCHLORIDE
  3. NEXAVAR [Suspect]
     Active Substance: SORAFENIB
     Indication: HEPATIC CANCER
     Dosage: 200 MG, BID
     Route: 048
     Dates: start: 20160504, end: 20160527
  4. NEXAVAR [Suspect]
     Active Substance: SORAFENIB
     Indication: HEPATIC CANCER
     Dosage: 400 MG, BID
     Route: 048
     Dates: start: 201605
  5. HYDROXYZINE [Concomitant]
     Active Substance: HYDROXYZINE\HYDROXYZINE HYDROCHLORIDE
  6. TRAMADOL. [Concomitant]
     Active Substance: TRAMADOL
  7. WARFARIN [Concomitant]
     Active Substance: WARFARIN
  8. LISINOPRIL. [Concomitant]
     Active Substance: LISINOPRIL
  9. OMEPRAZOLE. [Concomitant]
     Active Substance: OMEPRAZOLE
  10. METOPROLOL. [Concomitant]
     Active Substance: METOPROLOL

REACTIONS (9)
  - Pruritus [Not Recovered/Not Resolved]
  - Chest pain [Not Recovered/Not Resolved]
  - Anaemia [Not Recovered/Not Resolved]
  - Anal haemorrhage [Recovered/Resolved]
  - Anal fissure [Recovered/Resolved]
  - Underdose [Recovered/Resolved]
  - Pruritus [Not Recovered/Not Resolved]
  - Epistaxis [Recovered/Resolved]
  - Volume blood decreased [Not Recovered/Not Resolved]

NARRATIVE: CASE EVENT DATE: 20160504
